FAERS Safety Report 4713149-0 (Version None)
Quarter: 2005Q3

REPORT INFORMATION
  Report Type: 
  Country: None (occurrence: None)
  Receive Date: 20050712
  Receipt Date: 20050712
  Transmission Date: 20060218
  Serious: Yes (Other)
  Sender: FDA-Public Use
  Company Number: None

PATIENT
  Sex: Female

DRUGS (2)
  1. ATIVAN [Suspect]
     Indication: ANXIETY
     Dosage: QID
  2. ATIVAN [Suspect]
     Indication: PSYCHOTIC DISORDER
     Dosage: QID

REACTIONS (4)
  - AGITATION [None]
  - DRUG EFFECT DECREASED [None]
  - PRURITUS [None]
  - TINNITUS [None]
